FAERS Safety Report 6568561-4 (Version None)
Quarter: 2010Q1

REPORT INFORMATION
  Report Type: 
  Country: None (occurrence: None)
  Receive Date: 20100203
  Receipt Date: 20100122
  Transmission Date: 20100710
  Serious: Yes (Other)
  Sender: FDA-Public Use
  Company Number: JP-PFIZER INC-2010010455

PATIENT

DRUGS (1)
  1. ZOLOFT [Suspect]
     Dosage: 25 MG, DAILY
     Route: 048
     Dates: start: 20100120

REACTIONS (2)
  - ARRHYTHMIA [None]
  - BLOOD PRESSURE INCREASED [None]
